FAERS Safety Report 5458575-X (Version None)
Quarter: 2007Q3

REPORT INFORMATION
  Report Type: 
  Country: None (occurrence: None)
  Receive Date: 20070919
  Receipt Date: 20070405
  Transmission Date: 20080115
  Serious: No
  Sender: FDA-Public Use
  Company Number: US-ASTRAZENECA-2007UW06812

PATIENT
  Age: 44 Year
  Sex: Male

DRUGS (7)
  1. SEROQUEL [Suspect]
     Indication: MIGRAINE
  2. SEROQUEL [Suspect]
     Indication: SLEEP DISORDER
  3. SEROQUEL [Suspect]
     Route: 048
     Dates: start: 20070404
  4. SEROQUEL [Suspect]
     Route: 048
     Dates: start: 20070404
  5. INTERFERON [Concomitant]
  6. RIBAVIRIN [Concomitant]
  7. KEPPRA [Concomitant]

REACTIONS (1)
  - DRUG WITHDRAWAL SYNDROME [None]
